FAERS Safety Report 4655298-1 (Version None)
Quarter: 2005Q2

REPORT INFORMATION
  Report Type: 
  Country: None (occurrence: None)
  Receive Date: 20050404
  Receipt Date: 20041111
  Transmission Date: 20051028
  Serious: No
  Sender: FDA-Public Use
  Company Number: USA041183929

PATIENT
  Age: 49 Year
  Sex: Male

DRUGS (4)
  1. CYMBALTA [Suspect]
     Indication: ANTIDEPRESSANT THERAPY
     Dosage: 60 MG DAY
     Dates: start: 20041001
  2. ZONEGRAN [Concomitant]
  3. TRAMADOL HCL [Concomitant]
  4. METORPOLOL [Concomitant]

REACTIONS (5)
  - DIARRHOEA [None]
  - INSOMNIA [None]
  - MALE SEXUAL DYSFUNCTION [None]
  - NAUSEA [None]
  - POLLAKIURIA [None]
